FAERS Safety Report 5035816-4 (Version None)
Quarter: 2006Q2

REPORT INFORMATION
  Report Type: 
  Country: None (occurrence: None)
  Receive Date: 20060526
  Receipt Date: 20060425
  Transmission Date: 20061013
  Serious: No
  Sender: FDA-Public Use
  Company Number: FABR-11319

PATIENT
  Age: 53 Year
  Sex: Male
  Weight: 56.5 kg

DRUGS (5)
  1. FABRAZYME [Suspect]
     Indication: FABRY'S DISEASE
     Dosage: SEE IMAGE
     Route: 042
     Dates: start: 20031015, end: 20040928
  2. FABRAZYME [Suspect]
     Indication: FABRY'S DISEASE
     Dosage: SEE IMAGE
     Route: 042
     Dates: start: 20050501, end: 20050627
  3. FABRAZYME [Suspect]
     Indication: FABRY'S DISEASE
     Dosage: SEE IMAGE
     Route: 042
     Dates: start: 20041206
  4. FABRAZYME [Suspect]
     Indication: FABRY'S DISEASE
     Dosage: SEE IMAGE
     Route: 042
     Dates: start: 20050711
  5. ANTIALLERGIC MEDICATIONS [Concomitant]

REACTIONS (3)
  - CONFUSIONAL STATE [None]
  - PAIN IN EXTREMITY [None]
  - PYREXIA [None]
